FAERS Safety Report 11420737 (Version 1)
Quarter: 2015Q3

REPORT INFORMATION
  Report Type: Spontaneous
  Country: US (occurrence: US)
  Receive Date: 20150826
  Receipt Date: 20150826
  Transmission Date: 20151125
  Serious: No
  Sender: FDA-Public Use
  Company Number: US-BAYER-2015-409068

PATIENT
  Age: 70 Year
  Sex: Female
  Weight: 90.7 kg

DRUGS (6)
  1. OXYTROL FOR WOMEN [Suspect]
     Active Substance: OXYBUTYNIN
     Dosage: 1 DOSE, UNK
     Route: 061
     Dates: start: 201506, end: 201507
  2. CRANBERRY. [Concomitant]
     Active Substance: CRANBERRY
  3. FISH OIL [Concomitant]
     Active Substance: FISH OIL
  4. GLUCOSAMINE [Concomitant]
     Active Substance: GLUCOSAMINE
  5. OXYTROL FOR WOMEN [Suspect]
     Active Substance: OXYBUTYNIN
     Dosage: 1 DOSE, ONCE
     Route: 061
     Dates: start: 201507, end: 201507
  6. CALCIUM [CALCIUM] [Concomitant]
     Active Substance: CALCIUM

REACTIONS (1)
  - Drug ineffective [None]

NARRATIVE: CASE EVENT DATE: 201506
